FAERS Safety Report 19110021 (Version 2)
Quarter: 2021Q4

REPORT INFORMATION
  Report Type: Report from Study
  Country: US (occurrence: US)
  Receive Date: 20210408
  Receipt Date: 20211129
  Transmission Date: 20220303
  Serious: Yes (Death)
  Sender: FDA-Public Use
  Company Number: US-HLS-202104508

PATIENT
  Age: 55 Year
  Sex: Male
  Weight: 154 kg

DRUGS (1)
  1. CLOZAPINE [Suspect]
     Active Substance: CLOZAPINE
     Indication: Product used for unknown indication
     Dosage: 200 MG
     Route: 048
     Dates: end: 2019

REACTIONS (1)
  - Death [Fatal]
